FAERS Safety Report 10530343 (Version 1)
Quarter: 2014Q4

REPORT INFORMATION
  Report Type: Spontaneous
  Country: US (occurrence: US)
  Receive Date: 20141021
  Receipt Date: 20141021
  Transmission Date: 20150528
  Serious: Yes (Death, Other)
  Sender: FDA-Public Use
  Company Number: US-DRREDDYS-USA/USA/14/0043712

PATIENT
  Age: 65 Year
  Sex: Male

DRUGS (3)
  1. OMEPRAZOLE. [Interacting]
     Active Substance: OMEPRAZOLE
     Indication: PRODUCT USED FOR UNKNOWN INDICATION
     Route: 065
  2. MELOXICAM. [Suspect]
     Active Substance: MELOXICAM
     Indication: PRODUCT USED FOR UNKNOWN INDICATION
     Route: 065
  3. METHOTREXATE [Interacting]
     Active Substance: METHOTREXATE
     Indication: PRODUCT USED FOR UNKNOWN INDICATION
     Route: 065

REACTIONS (9)
  - Toxicity to various agents [Fatal]
  - Pancytopenia [None]
  - Drug interaction [Unknown]
  - Skin erosion [None]
  - Hepatic enzyme increased [None]
  - Renal impairment [None]
  - Acanthosis [None]
  - Blister [None]
  - Haemodialysis [None]
